FAERS Safety Report 17566071 (Version 3)
Quarter: 2020Q2

REPORT INFORMATION
  Report Type: Spontaneous
  Country: IT (occurrence: IT)
  Receive Date: 20200320
  Receipt Date: 20200616
  Transmission Date: 20200713
  Serious: Yes (Hospitalization, Other)
  Sender: FDA-Public Use
  Company Number: NVSC2020IT080264

PATIENT
  Age: 16 Year
  Sex: Male

DRUGS (4)
  1. MYCOPHENOLATE MOFETIL. [Suspect]
     Active Substance: MYCOPHENOLATE MOFETIL
     Indication: ACUTE GRAFT VERSUS HOST DISEASE IN LIVER
     Dosage: UNK
     Route: 065
  2. MYCOPHENOLATE MOFETIL. [Suspect]
     Active Substance: MYCOPHENOLATE MOFETIL
     Indication: IMMUNOSUPPRESSANT DRUG THERAPY
  3. ACICLOVIR [Suspect]
     Active Substance: ACYCLOVIR
     Indication: ANTIVIRAL PROPHYLAXIS
     Dosage: UNK
     Route: 065
  4. AMPHOTERICIN B. [Suspect]
     Active Substance: AMPHOTERICIN B
     Indication: BRONCHOPULMONARY ASPERGILLOSIS
     Dosage: 10 MG/KG
     Route: 065

REACTIONS (9)
  - Myositis [Unknown]
  - Pyrexia [Unknown]
  - Coagulopathy [Recovered/Resolved]
  - Hypersensitivity [Unknown]
  - Product use in unapproved indication [Unknown]
  - Aspergillus infection [Unknown]
  - Arthralgia [Unknown]
  - Acute hepatic failure [Recovered/Resolved]
  - Bronchopulmonary aspergillosis [Recovering/Resolving]
